FAERS Safety Report 13009231 (Version 2)
Quarter: 2016Q4

REPORT INFORMATION
  Report Type: Spontaneous
  Country: AT (occurrence: AT)
  Receive Date: 20161208
  Receipt Date: 20161223
  Transmission Date: 20170207
  Serious: Yes (Hospitalization)
  Sender: FDA-Public Use
  Company Number: AT-B.I. PHARMACEUTICALS,INC./RIDGEFIELD-2016-BI-082952

PATIENT
  Age: 83 Year
  Sex: Female
  Weight: 47 kg

DRUGS (1)
  1. PRADAXA [Suspect]
     Active Substance: DABIGATRAN ETEXILATE MESYLATE
     Indication: ATRIAL FIBRILLATION
     Route: 065

REACTIONS (6)
  - Oedema peripheral [Unknown]
  - Cardiac valve disease [Unknown]
  - Cardiac failure [Unknown]
  - Upper gastrointestinal haemorrhage [Recovered/Resolved]
  - Aortic valve stenosis [Unknown]
  - Ejection fraction decreased [Unknown]
